FAERS Safety Report 5616371-4 (Version None)
Quarter: 2008Q1

REPORT INFORMATION
  Report Type: 
  Country: None (occurrence: None)
  Receive Date: 20080205
  Receipt Date: 20080205
  Transmission Date: 20080703
  Serious: Yes (Death, Life-Threatening, Hospitalization, Other)
  Sender: FDA-Public Use
  Company Number: None

PATIENT
  Sex: Male
  Weight: 83.9154 kg

DRUGS (2)
  1. ALIMTA [Suspect]
     Indication: METASTASIS
     Dosage: IV
     Route: 042
     Dates: start: 20071130
  2. ALIMTA [Suspect]
     Indication: NON-SMALL CELL LUNG CANCER
     Dosage: IV
     Route: 042
     Dates: start: 20071130

REACTIONS (25)
  - ANOREXIA [None]
  - ASTHENIA [None]
  - BLOOD PRESSURE DECREASED [None]
  - BONE MARROW FAILURE [None]
  - CHILLS [None]
  - CLOSTRIDIAL INFECTION [None]
  - CONFUSIONAL STATE [None]
  - DIALYSIS [None]
  - DIARRHOEA [None]
  - DIZZINESS [None]
  - FLUID INTAKE REDUCED [None]
  - HAEMATOCHEZIA [None]
  - LETHARGY [None]
  - LIP SWELLING [None]
  - MOUTH HAEMORRHAGE [None]
  - MUCOSAL INFLAMMATION [None]
  - MULTI-ORGAN FAILURE [None]
  - NAUSEA [None]
  - OEDEMA MOUTH [None]
  - PETECHIAE [None]
  - PYREXIA [None]
  - RASH [None]
  - RESPIRATORY DISTRESS [None]
  - STOMATITIS [None]
  - THROMBOSIS [None]
